FAERS Safety Report 4989807-X (Version None)
Quarter: 2006Q2

REPORT INFORMATION
  Report Type: 
  Country: None (occurrence: None)
  Receive Date: 20060428
  Receipt Date: 20060420
  Transmission Date: 20061013
  Serious: Yes (Other)
  Sender: FDA-Public Use
  Company Number: 2006054997

PATIENT

DRUGS (8)
  1. LIPITOR [Suspect]
     Indication: ILL-DEFINED DISORDER
     Dosage: 5 MG (1 IN 1 D), ORAL
     Route: 048
  2. NORVASC [Suspect]
     Indication: ILL-DEFINED DISORDER
     Dosage: 2.25 MG (1 IN 1 D), ORAL
     Route: 048
  3. MICARDIS [Suspect]
     Indication: ILL-DEFINED DISORDER
     Dosage: 40 MG (1 IN 1 D), ORAL
     Route: 048
  4. AMARYL [Suspect]
     Indication: ILL-DEFINED DISORDER
     Dosage: ORAL
     Route: 048
  5. DORNER (BERAPROST SODIUM) [Suspect]
     Indication: ILL-DEFINED DISORDER
     Dosage: 120 UG (1 IN 1 D), ORAL
     Route: 048
  6. TICLOPIDINE HCL [Suspect]
     Indication: ILL-DEFINED DISORDER
     Dosage: 100 MG ( 1 IN 1 D), ORAL
     Route: 048
  7. LAFUTIDINE (LAFUTIDINE) [Concomitant]
  8. WARFARIN SODIUM [Concomitant]

REACTIONS (1)
  - NEPHRITIS INTERSTITIAL [None]
